FAERS Safety Report 8327505-5 (Version None)
Quarter: 2012Q2

REPORT INFORMATION
  Report Type: 
  Country: None (occurrence: None)
  Receive Date: 20120502
  Receipt Date: 20120424
  Transmission Date: 20120825
  Serious: No
  Sender: FDA-Public Use
  Company Number: US-BAYER-2012-041491

PATIENT
  Sex: Female
  Weight: 50 kg

DRUGS (1)
  1. NAPROXEN SODIUM [Suspect]
     Indication: DYSMENORRHOEA
     Dosage: 2 DF, PRN
     Route: 048
     Dates: start: 20120401, end: 20120401

REACTIONS (1)
  - NO ADVERSE EVENT [None]
